FAERS Safety Report 22049672 (Version 1)
Quarter: 2023Q1

REPORT INFORMATION
  Report Type: Spontaneous
  Country: FR (occurrence: FR)
  Receive Date: 20230301
  Receipt Date: 20230301
  Transmission Date: 20230417
  Serious: Yes (Hospitalization)
  Sender: FDA-Public Use
  Company Number: None

PATIENT
  Age: 75 Year
  Sex: Male

DRUGS (4)
  1. TELMISARTAN [Suspect]
     Active Substance: TELMISARTAN
     Indication: Hypertension
     Dosage: LONG COURSE, UNIT DOSE: 80 MG , FREQUENCY TIME : 1 DAY
     Route: 065
  2. PAROXETINE [Suspect]
     Active Substance: PAROXETINE
     Indication: Product used for unknown indication
     Dosage: LONG COURSE, PAROXETINE (CHLORHYDRATE) ANHYDROUS, UNIT DOSE: 10 MG , FREQUENCY TIME : 1 DAY, THERAPY
     Dates: end: 20220822
  3. ESOMEPRAZOLE [Suspect]
     Active Substance: ESOMEPRAZOLE
     Indication: Product used for unknown indication
     Dosage: LONG COURSE, UNIT DOSE: 20 MG , FREQUENCY TIME : 1 DAY, THERAPY START DATE : NASK
     Dates: end: 20220822
  4. HYDROCHLOROTHIAZIDE [Suspect]
     Active Substance: HYDROCHLOROTHIAZIDE
     Indication: Hypertension
     Dosage: LONG COURSE, UNIT DOSE: 12.5 MG , FREQUENCY TIME : 1 DAY, THERAPY START DATE : NASK
     Dates: end: 20220822

REACTIONS (1)
  - Hyponatraemia [Recovering/Resolving]

NARRATIVE: CASE EVENT DATE: 20220822
